FAERS Safety Report 12290453 (Version 1)
Quarter: 2016Q2

REPORT INFORMATION
  Report Type: Report from Study
  Country: DE (occurrence: DE)
  Receive Date: 20160421
  Receipt Date: 20160421
  Transmission Date: 20160815
  Serious: Yes (Death, Other)
  Sender: FDA-Public Use
  Company Number: PHHY2016DE053076

PATIENT
  Sex: Female

DRUGS (3)
  1. FOLINIC ACID [Concomitant]
     Active Substance: LEUCOVORIN
     Indication: BREAST CANCER
     Dosage: 300 MG, ABSOLUT
     Route: 065
     Dates: start: 20150317, end: 20150421
  2. EXJADE [Suspect]
     Active Substance: DEFERASIROX
     Indication: MYELODYSPLASTIC SYNDROME
     Dosage: 250 MG, QD
     Route: 065
     Dates: start: 20120401
  3. 5-FU [Concomitant]
     Active Substance: FLUOROURACIL
     Indication: BREAST CANCER
     Dosage: 740 MG, ABSOLUT
     Route: 065
     Dates: start: 20150317, end: 20150421

REACTIONS (3)
  - Breast cancer [Fatal]
  - Concomitant disease progression [Fatal]
  - Metastases to lung [Unknown]

NARRATIVE: CASE EVENT DATE: 20150424
